FAERS Safety Report 19973117 (Version 1)
Quarter: 2021Q4

REPORT INFORMATION
  Report Type: Spontaneous
  Country: ZA (occurrence: ZA)
  Receive Date: 20211020
  Receipt Date: 20211020
  Transmission Date: 20220303
  Serious: Yes (Other)
  Sender: FDA-Public Use
  Company Number: ZA-NOVARTISPH-NVSC2021ZA234625

PATIENT
  Sex: Male

DRUGS (1)
  1. ACLASTA [Suspect]
     Active Substance: ZOLEDRONIC ACID
     Indication: Osteoporosis
     Dosage: UNK UNK, ONCE/SINGLE
     Route: 065
     Dates: start: 2020

REACTIONS (2)
  - Pulmonary fibrosis [Not Recovered/Not Resolved]
  - COVID-19 [Not Recovered/Not Resolved]
